FAERS Safety Report 14618491 (Version 1)
Quarter: 2018Q1

REPORT INFORMATION
  Report Type: Spontaneous
  Country: FR (occurrence: FR)
  Receive Date: 20180309
  Receipt Date: 20180309
  Transmission Date: 20180509
  Serious: Yes (Hospitalization)
  Sender: FDA-Public Use
  Company Number: FR-PFIZER INC-2018094250

PATIENT
  Age: 59 Year
  Sex: Male

DRUGS (3)
  1. NATULAN [Suspect]
     Active Substance: PROCARBAZINE HYDROCHLORIDE
     Indication: GLIOMA
     Dosage: 30 MG/M2, UNK
     Route: 048
     Dates: start: 20180104, end: 20180125
  2. BELUSTINE [Suspect]
     Active Substance: LOMUSTINE
     Indication: GLIOMA
     Dosage: 110 MG/M2, UNK
     Route: 048
     Dates: start: 20171228, end: 20171228
  3. VINCRISTINE SULFATE. [Suspect]
     Active Substance: VINCRISTINE SULFATE
     Indication: GLIOMA
     Dosage: 1.4 MG/M2, UNK
     Route: 042
     Dates: start: 20180104, end: 20180104

REACTIONS (1)
  - Deep vein thrombosis [Recovered/Resolved]

NARRATIVE: CASE EVENT DATE: 20180112
